FAERS Safety Report 22636044 (Version 1)
Quarter: 2023Q2

REPORT INFORMATION
  Report Type: Spontaneous
  Country: TW (occurrence: TW)
  Receive Date: 20230623
  Receipt Date: 20230623
  Transmission Date: 20230722
  Serious: Yes (Other)
  Sender: FDA-Public Use
  Company Number: TW-UNITED THERAPEUTICS-UNT-2017-008626

PATIENT
  Sex: Female
  Weight: 44 kg

DRUGS (31)
  1. REMODULIN [Suspect]
     Active Substance: TREPROSTINIL
     Indication: Pulmonary arterial hypertension
     Dosage: 0.026 ?G/KG, CONTINUING
     Route: 058
     Dates: start: 20170518, end: 20170605
  2. REMODULIN [Suspect]
     Active Substance: TREPROSTINIL
     Dosage: 0.032 ?G/KG, CONTINUING
     Route: 058
     Dates: start: 20170511, end: 201705
  3. REMODULIN [Suspect]
     Active Substance: TREPROSTINIL
     Dosage: 0.034 ?G/KG, CONTINUING
     Route: 058
     Dates: start: 20170504, end: 201705
  4. REMODULIN [Suspect]
     Active Substance: TREPROSTINIL
     Dosage: 0.036 ?G/KG, CONTINUING
     Route: 058
     Dates: start: 20170427, end: 2017
  5. REMODULIN [Suspect]
     Active Substance: TREPROSTINIL
     Dosage: 0.040 ?G/KG, CONTINUING
     Route: 058
     Dates: start: 20170330, end: 2017
  6. REMODULIN [Suspect]
     Active Substance: TREPROSTINIL
     Dosage: 0.036 ?G/KG, CONTINUING
     Route: 058
     Dates: start: 20170323, end: 201703
  7. REMODULIN [Suspect]
     Active Substance: TREPROSTINIL
     Dosage: 0.040 ?G/KG, CONTINUING
     Route: 058
     Dates: start: 20170316, end: 201703
  8. REMODULIN [Suspect]
     Active Substance: TREPROSTINIL
     Dosage: 0.046 ?G/KG, CONTINUING
     Route: 058
     Dates: start: 20170309, end: 201703
  9. REMODULIN [Suspect]
     Active Substance: TREPROSTINIL
     Dosage: UNK, CONTINUING (RESTART)
     Route: 058
     Dates: start: 2016
  10. REMODULIN [Suspect]
     Active Substance: TREPROSTINIL
     Dosage: 0.001 ?G/KG, CONTINUING
     Route: 058
     Dates: start: 20130328, end: 201508
  11. REMODULIN [Suspect]
     Active Substance: TREPROSTINIL
     Indication: Pulmonary arterial hypertension
     Dosage: UNK, CONTINUING
     Route: 041
     Dates: end: 2016
  12. SILDENAFIL [Suspect]
     Active Substance: SILDENAFIL
     Indication: Pulmonary arterial hypertension
     Dosage: 20 MG, TID
     Route: 065
     Dates: start: 2010, end: 201508
  13. SELEXIPAG [Suspect]
     Active Substance: SELEXIPAG
     Indication: Pulmonary arterial hypertension
     Dosage: 200 MG, BID
     Route: 048
     Dates: start: 20170309, end: 201703
  14. SELEXIPAG [Suspect]
     Active Substance: SELEXIPAG
     Dosage: 400 MG, BID
     Route: 048
     Dates: start: 20170316, end: 201703
  15. SELEXIPAG [Suspect]
     Active Substance: SELEXIPAG
     Dosage: 400 MG, BID
     Route: 048
     Dates: start: 20170323, end: 201703
  16. SELEXIPAG [Suspect]
     Active Substance: SELEXIPAG
     Dosage: 200 MG, BID
     Route: 048
     Dates: start: 20170330, end: 2017
  17. SELEXIPAG [Suspect]
     Active Substance: SELEXIPAG
     Dosage: 400 MG, BID
     Route: 048
     Dates: start: 20170413, end: 201704
  18. SELEXIPAG [Suspect]
     Active Substance: SELEXIPAG
     Dosage: 600 MG, BID
     Route: 048
     Dates: start: 20170427, end: 2017
  19. SELEXIPAG [Suspect]
     Active Substance: SELEXIPAG
     Dosage: 800 MG, BID
     Route: 048
     Dates: start: 20170504, end: 201705
  20. SELEXIPAG [Suspect]
     Active Substance: SELEXIPAG
     Dosage: 1000 MG, BID
     Route: 048
     Dates: start: 20170511, end: 201705
  21. SELEXIPAG [Suspect]
     Active Substance: SELEXIPAG
     Dosage: 1200 MG, BID
     Route: 048
     Dates: start: 20170518, end: 2017
  22. SELEXIPAG [Suspect]
     Active Substance: SELEXIPAG
     Dosage: 1600 MG, BID
     Route: 048
     Dates: start: 20170601, end: 201706
  23. SELEXIPAG [Suspect]
     Active Substance: SELEXIPAG
     Dosage: 1400 MG, BID
     Route: 048
     Dates: start: 20170615, end: 2017
  24. SELEXIPAG [Suspect]
     Active Substance: SELEXIPAG
     Dosage: 1400 MG, BID
     Route: 048
     Dates: start: 20170706, end: 2017
  25. SELEXIPAG [Suspect]
     Active Substance: SELEXIPAG
     Dosage: 1600 MG, BID
     Route: 048
     Dates: start: 20170817
  26. BOSENTAN [Concomitant]
     Active Substance: BOSENTAN
     Indication: Pulmonary arterial hypertension
     Dosage: 62.5 MG, BID
     Route: 065
     Dates: start: 2010, end: 2014
  27. MACITENTAN [Concomitant]
     Active Substance: MACITENTAN
     Indication: Pulmonary arterial hypertension
     Dosage: UNK
     Route: 048
     Dates: start: 2014
  28. MACITENTAN [Concomitant]
     Active Substance: MACITENTAN
     Dosage: 10 MG, QD
     Route: 048
     Dates: start: 201705
  29. ILOPROST [Concomitant]
     Active Substance: ILOPROST
     Indication: Pulmonary arterial hypertension
     Dosage: UNK
     Dates: start: 201508
  30. RIOCIGUAT [Concomitant]
     Active Substance: RIOCIGUAT
     Indication: Pulmonary arterial hypertension
     Dosage: UNK
     Route: 048
     Dates: start: 201508
  31. RIOCIGUAT [Concomitant]
     Active Substance: RIOCIGUAT
     Dosage: 2.5 MG, QD
     Route: 048
     Dates: start: 201705

REACTIONS (21)
  - Depression suicidal [Unknown]
  - Pulmonary arterial hypertension [Recovering/Resolving]
  - Vascular device infection [Unknown]
  - Septic shock [Unknown]
  - Melaena [Unknown]
  - Right ventricular failure [Recovered/Resolved]
  - Anaemia [Recovered/Resolved]
  - Headache [Unknown]
  - Diarrhoea [Unknown]
  - Nausea [Unknown]
  - Vomiting [Unknown]
  - Infusion site pain [Unknown]
  - Pruritus [Unknown]
  - Back pain [Unknown]
  - Pain [Unknown]
  - Myalgia [Unknown]
  - Dizziness [Unknown]
  - Chest discomfort [Unknown]
  - Abdominal pain upper [Unknown]
  - Peripheral swelling [Unknown]
  - Drug intolerance [Unknown]

NARRATIVE: CASE EVENT DATE: 20160101
